FAERS Safety Report 17143060 (Version 1)
Quarter: 2019Q4

REPORT INFORMATION
  Report Type: Report from Study
  Country: JP (occurrence: JP)
  Receive Date: 20191211
  Receipt Date: 20191211
  Transmission Date: 20200122
  Serious: Yes (Hospitalization)
  Sender: FDA-Public Use
  Company Number: JP-BIOGEN-2019BI00815290

PATIENT
  Age: 38 Year
  Sex: Male
  Weight: 42.3 kg

DRUGS (1)
  1. TYSABRI [Suspect]
     Active Substance: NATALIZUMAB
     Indication: SECONDARY PROGRESSIVE MULTIPLE SCLEROSIS
     Route: 041
     Dates: start: 20190402, end: 20190515

REACTIONS (2)
  - Pneumonia aspiration [Unknown]
  - Off label use [Unknown]

NARRATIVE: CASE EVENT DATE: 20190612
